FAERS Safety Report 6065953-7 (Version None)
Quarter: 2009Q1

REPORT INFORMATION
  Report Type: 
  Country: None (occurrence: None)
  Receive Date: 20090205
  Receipt Date: 20090202
  Transmission Date: 20090719
  Serious: Yes (Life-Threatening)
  Sender: FDA-Public Use
  Company Number: FR-BRISTOL-MYERS SQUIBB COMPANY-14491211

PATIENT
  Age: 45 Year
  Sex: Female

DRUGS (4)
  1. TAXOL [Suspect]
     Indication: BREAST CANCER
     Dates: start: 20050901, end: 20051201
  2. ENDOXAN [Suspect]
     Indication: BREAST CANCER
     Dates: start: 20050801, end: 20050901
  3. HERCEPTIN [Suspect]
     Indication: BREAST CANCER
     Dosage: HERCEPTIN 150 MG. AGAIN HERCEPTIN 350MG/COURSE FOR 10 MONTHS FROM JUN-2006 TO APR-2007
     Dates: start: 20050901, end: 20051201
  4. EPIRUBICIN [Suspect]
     Indication: BREAST CANCER
     Dates: start: 20050801, end: 20050901

REACTIONS (1)
  - MYCOSIS FUNGOIDES [None]
